FAERS Safety Report 5587934-X (Version None)
Quarter: 2008Q1

REPORT INFORMATION
  Report Type: 
  Country: None (occurrence: None)
  Receive Date: 20080111
  Receipt Date: 20070525
  Transmission Date: 20080703
  Serious: No
  Sender: FDA-Public Use
  Company Number: US-KINGPHARMUSA00001-K200700653

PATIENT

DRUGS (1)
  1. INTAL [Suspect]
     Indication: URTICARIA PIGMENTOSA
     Dosage: 40 MG, SINGLE
     Route: 048
     Dates: start: 20070401, end: 20070401

REACTIONS (2)
  - INCORRECT DOSE ADMINISTERED [None]
  - NO ADVERSE EVENT [None]
